FAERS Safety Report 14983866 (Version 1)
Quarter: 2018Q2

REPORT INFORMATION
  Report Type: Spontaneous
  Country: US (occurrence: US)
  Receive Date: 20180607
  Receipt Date: 20180607
  Transmission Date: 20180711
  Serious: No
  Sender: FDA-Public Use
  Company Number: US-MYLANLABS-2018M1032883

PATIENT
  Sex: Female

DRUGS (3)
  1. PREDNISONE. [Suspect]
     Active Substance: PREDNISONE
     Indication: DRUG HYPERSENSITIVITY
     Dosage: 3 DF, QD
     Route: 048
  2. PREDNISONE. [Suspect]
     Active Substance: PREDNISONE
     Dosage: 2 DF, QD
     Route: 048
  3. PREDNISONE. [Suspect]
     Active Substance: PREDNISONE
     Dosage: 1 DF, QD
     Route: 048

REACTIONS (6)
  - Gastrooesophageal reflux disease [Not Recovered/Not Resolved]
  - Abdominal distension [Not Recovered/Not Resolved]
  - Nausea [Not Recovered/Not Resolved]
  - Diarrhoea [Not Recovered/Not Resolved]
  - Eructation [Not Recovered/Not Resolved]
  - Dyspepsia [Not Recovered/Not Resolved]
